FAERS Safety Report 9886685 (Version 4)
Quarter: 2014Q3

REPORT INFORMATION
  Report Type: Spontaneous
  Country: AU (occurrence: AU)
  Receive Date: 20140210
  Receipt Date: 20140818
  Transmission Date: 20150326
  Serious: Yes (Other)
  Sender: FDA-Public Use
  Company Number: AU-ABBVIE-13P-008-1136304-00

PATIENT
  Age: 34 Year
  Sex: Male

DRUGS (3)
  1. HUMIRA [Suspect]
     Active Substance: ADALIMUMAB
     Indication: CROHN^S DISEASE
     Route: 058
  2. HUMIRA [Suspect]
     Active Substance: ADALIMUMAB
     Indication: GASTROINTESTINAL FISTULA
     Dosage: FORTHNIGHTLY DOSE
     Route: 058
     Dates: start: 201312
  3. HUMIRA [Suspect]
     Active Substance: ADALIMUMAB
     Indication: ANKYLOSING SPONDYLITIS
     Dosage: INCREASED (10/7) HUMIRA
     Route: 058

REACTIONS (5)
  - Unevaluable event [Unknown]
  - Fistula discharge [Recovering/Resolving]
  - Procedural haemorrhage [Unknown]
  - Unevaluable event [Unknown]
  - Crohn^s disease [Unknown]

NARRATIVE: CASE EVENT DATE: 201310
